FAERS Safety Report 5581713-5 (Version None)
Quarter: 2008Q1

REPORT INFORMATION
  Report Type: 
  Country: None (occurrence: None)
  Receive Date: 20080104
  Receipt Date: 20071226
  Transmission Date: 20080703
  Serious: Yes (Death)
  Sender: FDA-Public Use
  Company Number: FR-JNJFOC-20080100332

PATIENT
  Age: 84 Year
  Sex: Female

DRUGS (1)
  1. HALDOL DECANOAS [Suspect]
     Indication: AGITATION
     Route: 030

REACTIONS (7)
  - BEDRIDDEN [None]
  - DEPENDENT PERSONALITY DISORDER [None]
  - EXTRAPYRAMIDAL DISORDER [None]
  - INFLAMMATION [None]
  - PNEUMONIA ASPIRATION [None]
  - SEPSIS SYNDROME [None]
  - SOMNOLENCE [None]
